FAERS Safety Report 12901083 (Version 1)
Quarter: 2016Q4

REPORT INFORMATION
  Report Type: Spontaneous
  Country: US (occurrence: US)
  Receive Date: 20161101
  Receipt Date: 20161101
  Transmission Date: 20170207
  Serious: Yes (Other)
  Sender: FDA-Public Use
  Company Number: US-LUNDBECK-DKLU2021746

PATIENT
  Age: 46 Year
  Sex: Female

DRUGS (4)
  1. VIGABATRIN (TABLET) [Suspect]
     Active Substance: VIGABATRIN
     Indication: SEIZURE
     Route: 065
  2. VIGABATRIN (TABLET) [Suspect]
     Active Substance: VIGABATRIN
     Route: 065
  3. VIGABATRIN (TABLET) [Suspect]
     Active Substance: VIGABATRIN
     Route: 065
  4. VIGABATRIN (TABLET) [Suspect]
     Active Substance: VIGABATRIN
     Route: 065

REACTIONS (4)
  - Seizure [Unknown]
  - Visual field defect [Unknown]
  - Retinogram abnormal [Unknown]
  - Retinal toxicity [Unknown]
